FAERS Safety Report 6234450-8 (Version None)
Quarter: 2009Q2

REPORT INFORMATION
  Report Type: 
  Country: None (occurrence: None)
  Receive Date: 20090615
  Receipt Date: 20090505
  Transmission Date: 20091009
  Serious: No
  Sender: FDA-Public Use
  Company Number: DSA_33599_2009

PATIENT
  Sex: Male

DRUGS (2)
  1. XENAZINE [Suspect]
     Indication: CHOREA
     Dosage: (DF), (25 MG TID)
     Dates: start: 20070101, end: 20090101
  2. XENAZINE [Suspect]
     Indication: CHOREA
     Dosage: (DF), (25 MG TID)
     Dates: start: 20090204

REACTIONS (3)
  - FATIGUE [None]
  - SEDATION [None]
  - SOMNOLENCE [None]
